FAERS Safety Report 9138211 (Version 2)
Quarter: 2013Q2

REPORT INFORMATION
  Report Type: Report from Study
  Country: US (occurrence: US)
  Receive Date: 20130304
  Receipt Date: 20130401
  Transmission Date: 20140414
  Serious: Yes (Other)
  Sender: FDA-Public Use
  Company Number: US-US-EMD SERONO, INC.-7196549

PATIENT
  Age: 56 Year
  Sex: Female

DRUGS (2)
  1. REBIF [Suspect]
     Indication: PRODUCT USED FOR UNKNOWN INDICATION
     Route: 058
     Dates: start: 20120418
  2. REBIF [Suspect]
     Route: 058

REACTIONS (3)
  - Cholelithiasis [Recovering/Resolving]
  - Hypoaesthesia [Unknown]
  - Liver function test abnormal [Unknown]
